FAERS Safety Report 5464911-0 (Version None)
Quarter: 2007Q3

REPORT INFORMATION
  Report Type: 
  Country: None (occurrence: None)
  Receive Date: 20070820
  Receipt Date: 20070514
  Transmission Date: 20080115
  Serious: No
  Sender: FDA-Public Use
  Company Number: TPA2007A01073

PATIENT
  Age: 52 Year
  Sex: Female

DRUGS (1)
  1. ROZEREM [Suspect]
     Dosage: 8 MG, HS, PER ORAL
     Route: 048

REACTIONS (3)
  - ABNORMAL DREAMS [None]
  - POOR QUALITY SLEEP [None]
  - SCREAMING [None]
